FAERS Safety Report 6124840-6 (Version None)
Quarter: 2009Q1

REPORT INFORMATION
  Report Type: 
  Country: None (occurrence: None)
  Receive Date: 20090319
  Receipt Date: 20090305
  Transmission Date: 20090719
  Serious: Yes (Hospitalization)
  Sender: FDA-Public Use
  Company Number: JP-PFIZER INC-2009180390

PATIENT

DRUGS (5)
  1. ZOLOFT [Suspect]
     Dosage: UNK
     Route: 048
     Dates: start: 20081001, end: 20090101
  2. LIMAS [Suspect]
     Dosage: UNK
     Route: 048
     Dates: start: 20080901, end: 20090101
  3. NITRAZEPAM [Concomitant]
     Route: 048
  4. DEZOLAM [Concomitant]
     Route: 048
  5. LANSOPRAZOLE [Concomitant]
     Route: 048

REACTIONS (3)
  - ALTERED STATE OF CONSCIOUSNESS [None]
  - BLOOD CREATINE PHOSPHOKINASE ABNORMAL [None]
  - LIVER DISORDER [None]
